FAERS Safety Report 6512073-0 (Version None)
Quarter: 2009Q4

REPORT INFORMATION
  Report Type: 
  Country: None (occurrence: None)
  Receive Date: 20091222
  Receipt Date: 20090626
  Transmission Date: 20100525
  Serious: Yes (Other)
  Sender: FDA-Public Use
  Company Number: US-ASTRAZENECA-2009UW13608

PATIENT
  Age: 51 Year
  Sex: Male

DRUGS (5)
  1. CRESTOR [Suspect]
     Indication: HYPERLIPIDAEMIA
     Route: 048
     Dates: start: 20090323, end: 20090526
  2. LOTREL [Concomitant]
  3. BENICAR [Concomitant]
  4. JANUVIA [Concomitant]
  5. METFORMIN HCL [Concomitant]

REACTIONS (4)
  - BLOOD CREATINE PHOSPHOKINASE ABNORMAL [None]
  - MUSCLE SPASMS [None]
  - MYALGIA [None]
  - RHABDOMYOLYSIS [None]
